FAERS Safety Report 25307699 (Version 1)
Quarter: 2025Q2

REPORT INFORMATION
  Report Type: Spontaneous
  Country: US (occurrence: None)
  Receive Date: 20250513
  Receipt Date: 20250513
  Transmission Date: 20250717
  Serious: Yes (Hospitalization)
  Sender: FDA-CTU
  Company Number: None

PATIENT
  Age: 60 Year
  Sex: Male
  Weight: 96.75 kg

DRUGS (1)
  1. SEMAGLUTIDE [Suspect]
     Active Substance: SEMAGLUTIDE
     Indication: Weight decreased
     Dates: start: 20240119, end: 20250214

REACTIONS (12)
  - Vomiting [None]
  - Abdominal distension [None]
  - Abdominal discomfort [None]
  - Cystitis escherichia [None]
  - Abdominal pain [None]
  - Intestinal obstruction [None]
  - Diverticulitis [None]
  - Gastrointestinal infection [None]
  - Vesical fistula [None]
  - Dehydration [None]
  - Fatigue [None]
  - Asthenia [None]

NARRATIVE: CASE EVENT DATE: 20240412
